FAERS Safety Report 4728605-9 (Version None)
Quarter: 2005Q3

REPORT INFORMATION
  Report Type: 
  Country: None (occurrence: None)
  Receive Date: 20050727
  Receipt Date: 20050715
  Transmission Date: 20060218
  Serious: Yes (Death)
  Sender: FDA-Public Use
  Company Number: 200506IM000256

PATIENT
  Age: 46 Year
  Sex: Female
  Weight: 66.2252 kg

DRUGS (15)
  1. INTERFERON ALFACON-1 [Suspect]
     Indication: CHRONIC HEPATITIS
     Dosage: 15 UG, QD, SUBCUTANEOUS
     Route: 058
     Dates: start: 20050502, end: 20050621
  2. RIBAVIRIN [Suspect]
     Indication: CHRONIC HEPATITIS
     Dosage: 1000 MG, QD,ORAL
     Route: 048
     Dates: start: 20050502, end: 20050621
  3. XANAX [Concomitant]
  4. MULTI-VITAMINS [Concomitant]
  5. GREEN TEA [Concomitant]
  6. MILK THISTLE [Concomitant]
  7. CALCIUM /MAGNESIUM/ZINC [Concomitant]
  8. LEXAPRO [Concomitant]
  9. ADVAIR DISKUS 100/50 [Concomitant]
  10. ALBUTEROL [Concomitant]
  11. ACETAMINOPHEN [Concomitant]
  12. AMBIEN [Concomitant]
  13. COMPAZINE [Concomitant]
  14. OCEAN NASAL SPRAY [Concomitant]
  15. DARVOCET-N 100 [Concomitant]

REACTIONS (8)
  - ANXIETY [None]
  - APATHY [None]
  - DEPRESSION [None]
  - HEADACHE [None]
  - LOSS OF CONSCIOUSNESS [None]
  - NAUSEA [None]
  - PULMONARY HAEMORRHAGE [None]
  - THERAPY NON-RESPONDER [None]
